FAERS Safety Report 10419310 (Version 1)
Quarter: 2014Q2

REPORT INFORMATION
  Report Type: Report from Study
  Country: US (occurrence: None)
  Receive Date: 20140627
  Receipt Date: 20140627
  Transmission Date: 20141212
  Serious: No
  Sender: FDA-Public Use
  Company Number: CABO 14004110

PATIENT
  Age: 58 Year
  Sex: Male

DRUGS (5)
  1. COMETRIQ (CABOZANTINIB) CAPSULE [Suspect]
     Indication: THYROID CANCER
     Route: 048
     Dates: start: 20140228, end: 20140320
  2. IMODIUM (LOPERAMIDE HYDROCHLORIDE) (LOPERAMIDE) [Concomitant]
  3. LEVOTHYROXINE (LEVOTHYROXINE) [Concomitant]
  4. PREDNISONE (PREDNISONE) [Concomitant]
  5. TESTOSTERONE (TESTOSTERONE) [Concomitant]

REACTIONS (5)
  - Pain in extremity [None]
  - Skin exfoliation [None]
  - Rash [None]
  - Stomatitis [None]
  - Weight decreased [None]
